FAERS Safety Report 8579643-X (Version None)
Quarter: 2012Q3

REPORT INFORMATION
  Report Type: 
  Country: None (occurrence: None)
  Receive Date: 20120808
  Receipt Date: 20120803
  Transmission Date: 20120928
  Serious: Yes (Other)
  Sender: FDA-Public Use
  Company Number: PHHY2012US067362

PATIENT
  Age: 61 Year
  Sex: Female

DRUGS (2)
  1. DOXORUBICIN HYDROCHLORIDE [Suspect]
     Indication: BREAST CANCER
     Dosage: 60 MG/M2, ONCE EVERY TWO WEEKS
  2. CYCLOPHOSPHAMIDE [Concomitant]
     Indication: BREAST CANCER

REACTIONS (6)
  - EJECTION FRACTION DECREASED [None]
  - HEPATOJUGULAR REFLUX [None]
  - VENTRICULAR HYPOKINESIA [None]
  - DYSPNOEA [None]
  - SINUS TACHYCARDIA [None]
  - RALES [None]
